FAERS Safety Report 13390253 (Version 8)
Quarter: 2019Q1

REPORT INFORMATION
  Report Type: Report from Study
  Country: ZA (occurrence: ZA)
  Receive Date: 20170331
  Receipt Date: 20190306
  Transmission Date: 20190417
  Serious: Yes (Other)
  Sender: FDA-Public Use
  Company Number: PHHY2017ZA046013

PATIENT
  Sex: Male
  Weight: 84 kg

DRUGS (5)
  1. DESFERAL [Suspect]
     Active Substance: DEFEROXAMINE MESYLATE
     Dosage: 2500 MG, UNK
     Route: 065
     Dates: start: 20180301
  2. DESFERAL [Suspect]
     Active Substance: DEFEROXAMINE MESYLATE
     Indication: THALASSAEMIA
     Dosage: 8 VIALS FIVE DAYS A WEEK
     Route: 065
     Dates: start: 1995
  3. DESFERAL [Suspect]
     Active Substance: DEFEROXAMINE MESYLATE
     Dosage: (8 VIALS X 7 DAYS VIA THE SYRINGE PUMP)
     Route: 065
  4. LASIX [Concomitant]
     Active Substance: FUROSEMIDE
     Indication: TRANSFUSION
     Dosage: 20 MG, (AFTER EACH UNIT OF BLOOD ON HIS ROUTINE BLOOD TRANSFUSION DAYS)
     Route: 065
  5. EXJADE [Suspect]
     Active Substance: DEFERASIROX
     Indication: THALASSAEMIA
     Dosage: 2500 MG, UNK
     Route: 065
     Dates: start: 201803

REACTIONS (8)
  - Cholelithiasis [Unknown]
  - Product use issue [Unknown]
  - Serum ferritin increased [Unknown]
  - Iron overload [Not Recovered/Not Resolved]
  - Diabetes mellitus [Unknown]
  - Hepatomegaly [Not Recovered/Not Resolved]
  - Cardiac failure [Unknown]
  - Pulmonary hypertension [Not Recovered/Not Resolved]

NARRATIVE: CASE EVENT DATE: 2008
